FAERS Safety Report 10362104 (Version 1)
Quarter: 2014Q1

REPORT INFORMATION
  Report Type: Spontaneous
  Country: US (occurrence: None)
  Receive Date: 20140306
  Receipt Date: 20140306
  Transmission Date: 20141002
  Serious: Yes (Other)
  Sender: FDA-Public Use
  Company Number: 163-21880-13083722

PATIENT
  Age: 64 Year
  Sex: Male

DRUGS (9)
  1. REVLIMID (LENALIDOMIDE) (25 MILLIGRAM, CAPSULES) [Suspect]
     Indication: PLASMA CELL MYELOMA
     Dosage: 25 MG, 1 IN 1 D, PO NOV/2008  - UNKNOWN THERAPY DATE
     Route: 048
     Dates: start: 200811
  2. HUMALOG (INSULIN LISPRO) [Concomitant]
  3. DEXAMETHASONE [Concomitant]
  4. NORVASC (AMLODIPINE BESILATE) [Concomitant]
  5. LOTENSIN (BENAZEPRIL HYDROCHLORIDE) [Concomitant]
  6. LANTUS (INSULIN GLARGINE) [Concomitant]
  7. VITAMIN D (ERGOCALCIFEROL) [Concomitant]
  8. CALCIUM [Concomitant]
  9. ZINC [Concomitant]

REACTIONS (1)
  - Thrombosis [None]
